FAERS Safety Report 10332624 (Version 2)
Quarter: 2014Q3

REPORT INFORMATION
  Report Type: Spontaneous
  Country: US (occurrence: US)
  Receive Date: 20140722
  Receipt Date: 20140722
  Transmission Date: 20150326
  Serious: No
  Sender: FDA-Public Use
  Company Number: US-UNITED THERAPEUTICS-UTC-041626

PATIENT
  Age: 54 Year
  Sex: Male
  Weight: 77.56 kg

DRUGS (2)
  1. ADCIRCA [Concomitant]
     Active Substance: TADALAFIL
  2. REMODULIN [Suspect]
     Active Substance: TREPROSTINIL
     Dosage: 0.019 UG/KG/MIN
     Route: 058
     Dates: start: 20131011

REACTIONS (2)
  - Thrombosis in device [Unknown]
  - Infusion site pain [Unknown]

NARRATIVE: CASE EVENT DATE: 2013
